FAERS Safety Report 4286504-3 (Version None)
Quarter: 2004Q1

REPORT INFORMATION
  Report Type: 
  Country: None (occurrence: None)
  Receive Date: 20040206
  Receipt Date: 20040127
  Transmission Date: 20041129
  Serious: Yes (Hospitalization)
  Sender: FDA-Public Use
  Company Number: US-BRISTOL-MYERS SQUIBB COMPANY-12488219

PATIENT
  Age: 25 Year
  Sex: Male

DRUGS (2)
  1. ABILIFY [Suspect]
  2. CLOZAPINE [Concomitant]

REACTIONS (3)
  - AGGRESSION [None]
  - MANIA [None]
  - SCHIZOAFFECTIVE DISORDER [None]
